FAERS Safety Report 7599350-X (Version None)
Quarter: 2011Q3

REPORT INFORMATION
  Report Type: 
  Country: None (occurrence: None)
  Receive Date: 20110711
  Receipt Date: 20091203
  Transmission Date: 20111222
  Serious: Yes (Death, Hospitalization, Other)
  Sender: FDA-Public Use
  Company Number: US-BAYER-201038699NA

PATIENT
  Age: 64 Year
  Sex: Female
  Weight: 93 kg

DRUGS (27)
  1. CONTRAST MEDIA [Concomitant]
     Indication: CATHETERISATION CARDIAC
     Dosage: 50 ML, UNK
     Dates: start: 20060119
  2. LANOXIN [Concomitant]
     Dosage: 0.125 MG, QD
  3. VERSED [Concomitant]
     Dosage: 10 MG TOTAL
     Route: 042
     Dates: start: 20060127, end: 20060127
  4. TRASYLOL [Suspect]
     Indication: MITRAL VALVE REPAIR
     Dosage: 200 ML LOADING DOSE
     Route: 042
     Dates: start: 20060127, end: 20060127
  5. LASIX [Concomitant]
     Dosage: 80 MG, QD
     Route: 048
  6. FENTANYL [Concomitant]
     Dosage: CONTINUOUS INFUSION
     Route: 042
     Dates: start: 20060127, end: 20060127
  7. ANCEF [Concomitant]
     Dosage: 2 G, UNK
     Route: 042
     Dates: start: 20060127, end: 20060127
  8. RED BLOOD CELLS [Concomitant]
     Dosage: 5 U, ONCE
     Route: 042
     Dates: start: 20060127
  9. TRASYLOL [Suspect]
     Indication: CORONARY ARTERY BYPASS
     Dosage: 1 ML, ONCE
     Route: 042
     Dates: start: 20060127, end: 20060127
  10. COREG [Concomitant]
     Dosage: 12.5 MG, BID
     Route: 048
  11. TRASYLOL [Suspect]
     Indication: ANEURYSM REPAIR
  12. ACETYLSALICYLIC ACID SRT [Concomitant]
     Dosage: 81 MG, QD
     Route: 048
  13. LASIX [Concomitant]
     Dosage: 20 MG
     Route: 042
     Dates: start: 20060127, end: 20060127
  14. ZOCOR [Concomitant]
     Dosage: 40 MG, QD
     Route: 048
  15. PLATELETS [Concomitant]
     Dosage: 10 U, ONCE
     Route: 042
     Dates: start: 20060127
  16. POTASSIUM CHLORIDE [Concomitant]
     Dosage: 20 MEQ, QD
     Route: 048
  17. CAPTOPRIL [Concomitant]
     Dosage: 6.75 UNK, TWICE DAILY
     Route: 048
     Dates: start: 20050901
  18. IMDUR [Concomitant]
     Dosage: 30 MG, QD
     Route: 048
  19. LEVOPHED [Concomitant]
     Dosage: CONTINUOUS DRIP
     Route: 042
     Dates: start: 20060127
  20. ZAROXOLYN [Concomitant]
     Dosage: 2.5 MG, QD
     Route: 048
  21. LOVENOX [Concomitant]
     Dosage: 40 MG, QD
     Route: 058
     Dates: start: 20051221
  22. EPINEPHRINE [Concomitant]
     Dosage: CONTINUOUS DRIP
     Route: 042
     Dates: start: 20060127
  23. TRASYLOL [Suspect]
     Indication: TRICUSPID VALVE REPAIR
     Dosage: 50 ML/HR INFUSION
     Route: 042
     Dates: start: 20060127, end: 20060127
  24. CEFAZOLIN [Concomitant]
     Dosage: 1 G EVERY 8 HOURS
     Route: 042
     Dates: start: 20051221, end: 20051230
  25. HEPARIN [Concomitant]
     Dosage: 30,000
     Route: 042
     Dates: start: 20060127, end: 20060127
  26. PROTAMINE SULFATE [Concomitant]
     Dosage: 25 MG X 2 DOSES
     Route: 042
     Dates: start: 20060127, end: 20060127
  27. FRESH FROZEN PLASMA [Concomitant]
     Dosage: 4 U, ONCE
     Route: 042
     Dates: start: 20060127

REACTIONS (14)
  - EMOTIONAL DISTRESS [None]
  - STRESS [None]
  - RENAL IMPAIRMENT [None]
  - RENAL INJURY [None]
  - RENAL FAILURE [None]
  - ANXIETY [None]
  - PAIN [None]
  - CARDIO-RESPIRATORY ARREST [None]
  - FEAR [None]
  - MULTI-ORGAN FAILURE [None]
  - INJURY [None]
  - UNEVALUABLE EVENT [None]
  - SEPTIC SHOCK [None]
  - BACTERAEMIA [None]
